FAERS Safety Report 4749045-2 (Version None)
Quarter: 2005Q3

REPORT INFORMATION
  Report Type: 
  Country: None (occurrence: None)
  Receive Date: 20050819
  Receipt Date: 20050808
  Transmission Date: 20060218
  Serious: Yes (Death)
  Sender: FDA-Public Use
  Company Number: US-JNJFOC-20050803180

PATIENT
  Age: 85 Year
  Sex: Female

DRUGS (12)
  1. DURAGESIC-100 [Suspect]
     Indication: CANCER PAIN
     Route: 062
     Dates: start: 20040101, end: 20050728
  2. PULMACORT [Concomitant]
     Indication: ASTHMA
     Dates: end: 20050728
  3. LANOXIN [Concomitant]
     Indication: ATRIAL FIBRILLATION
     Route: 048
     Dates: end: 20050728
  4. LASIX [Concomitant]
     Indication: HYPERTENSION
     Route: 048
     Dates: end: 20050728
  5. LASIX [Concomitant]
     Indication: DIURETIC THERAPY
     Route: 048
     Dates: end: 20050728
  6. AVAPRO [Concomitant]
     Indication: HYPERTENSION
     Route: 048
     Dates: end: 20050728
  7. WARFARIN [Concomitant]
     Indication: ANTICOAGULANT THERAPY
     Route: 048
     Dates: end: 20050728
  8. NITROGLYCERIN [Concomitant]
     Indication: ANGINA PECTORIS
     Dosage: AS NECESSARY
     Route: 060
     Dates: end: 20050728
  9. MORPHINE SULFATE [Concomitant]
     Indication: CANCER PAIN
     Route: 060
     Dates: end: 20050728
  10. AMBIEN [Concomitant]
     Indication: SLEEP DISORDER THERAPY
     Route: 048
     Dates: end: 20050728
  11. DOXYCYCLINE [Concomitant]
     Route: 048
     Dates: end: 20050728
  12. ACIPHEX [Concomitant]
     Route: 048
     Dates: end: 20050728

REACTIONS (1)
  - B-CELL LYMPHOMA [None]
